FAERS Safety Report 4862976-8 (Version None)
Quarter: 2005Q4

REPORT INFORMATION
  Report Type: 
  Country: None (occurrence: None)
  Receive Date: 20051221
  Receipt Date: 20050915
  Transmission Date: 20060501
  Serious: Yes (Hospitalization, Disabling, Other)
  Sender: FDA-Public Use
  Company Number: US-MERCK-0509USA02473

PATIENT
  Age: 61 Year
  Sex: Male
  Weight: 100 kg

DRUGS (3)
  1. VIOXX [Suspect]
     Indication: RHEUMATOID ARTHRITIS
     Route: 048
     Dates: start: 19991025, end: 20000124
  2. PRILOSEC [Concomitant]
     Route: 065
  3. PREDNISONE [Concomitant]
     Route: 065
     Dates: start: 19980101

REACTIONS (29)
  - ANXIETY [None]
  - AORTIC VALVE INCOMPETENCE [None]
  - ATRIAL FIBRILLATION [None]
  - CARDIAC DISORDER [None]
  - CARDIAC FAILURE CONGESTIVE [None]
  - CARDIOMYOPATHY [None]
  - CONSTIPATION [None]
  - DIZZINESS POSTURAL [None]
  - DRUG HYPERSENSITIVITY [None]
  - DYSPHAGIA [None]
  - DYSPNOEA [None]
  - ERECTILE DYSFUNCTION [None]
  - FATIGUE [None]
  - GASTRITIS [None]
  - HERPES ZOSTER [None]
  - HYPERLIPIDAEMIA [None]
  - HYPERVENTILATION [None]
  - HYPOKALAEMIA [None]
  - IDIOPATHIC URTICARIA [None]
  - INCREASED TENDENCY TO BRUISE [None]
  - INTRACARDIAC THROMBUS [None]
  - MYOCARDIAL INFARCTION [None]
  - POLLAKIURIA [None]
  - PROSTATE CANCER [None]
  - PROSTATIC SPECIFIC ANTIGEN INCREASED [None]
  - RESTLESS LEGS SYNDROME [None]
  - SLEEP DISORDER [None]
  - TINNITUS [None]
  - VENTRICULAR DYSFUNCTION [None]
